FAERS Safety Report 16004778 (Version 1)
Quarter: 2019Q1

REPORT INFORMATION
  Report Type: Spontaneous
  Country: US (occurrence: US)
  Receive Date: 20190225
  Receipt Date: 20190225
  Transmission Date: 20190418
  Serious: No
  Sender: FDA-Public Use
  Company Number: None

PATIENT
  Age: 41 Year
  Sex: Male

DRUGS (2)
  1. MORPHABOND ER [Suspect]
     Active Substance: MORPHINE SULFATE
     Indication: BACK PAIN
     Route: 048
     Dates: start: 20180906, end: 20190221
  2. MORPHABOND ER [Suspect]
     Active Substance: MORPHINE SULFATE
     Indication: LUMBAR RADICULOPATHY
     Route: 048
     Dates: start: 20180906, end: 20190221

REACTIONS (1)
  - Product residue present [None]

NARRATIVE: CASE EVENT DATE: 20190221
